FAERS Safety Report 8595498-1 (Version None)
Quarter: 2012Q3

REPORT INFORMATION
  Report Type: 
  Country: None (occurrence: None)
  Receive Date: 20120815
  Receipt Date: 20120806
  Transmission Date: 20120928
  Serious: Yes (Life-Threatening, Hospitalization, Other)
  Sender: FDA-Public Use
  Company Number: US-MUTUAL PHARMACEUTICAL COMPANY, INC.-KTNZ20120001

PATIENT
  Age: 83 Year
  Sex: Female

DRUGS (4)
  1. VERAPAMIL [Suspect]
     Indication: HYPERTENSION
     Route: 065
  2. POTASSIUM [Concomitant]
     Indication: HYPOKALAEMIA
     Route: 048
  3. KETOCONAZOLE [Suspect]
     Indication: CUSHING'S SYNDROME
     Route: 048
  4. KETOCONAZOLE [Suspect]
     Route: 048

REACTIONS (5)
  - HYPOTENSION [None]
  - MENTAL STATUS CHANGES [None]
  - POTENTIATING DRUG INTERACTION [None]
  - ATRIOVENTRICULAR BLOCK COMPLETE [None]
  - BRADYCARDIA [None]
